FAERS Safety Report 15518583 (Version 8)
Quarter: 2019Q2

REPORT INFORMATION
  Report Type: Spontaneous
  Country: US (occurrence: US)
  Receive Date: 20181017
  Receipt Date: 20190426
  Transmission Date: 20190711
  Serious: Yes (Hospitalization)
  Sender: FDA-Public Use
  Company Number: US-ACTELION-A-US2018-180326

PATIENT
  Age: 8 Year
  Sex: Male
  Weight: 22.68 kg

DRUGS (5)
  1. TRACLEER [Suspect]
     Active Substance: BOSENTAN
     Indication: PULMONARY ARTERIAL HYPERTENSION
     Dosage: 62.5 MG, BID
     Route: 048
  2. REMODULIN [Suspect]
     Active Substance: TREPROSTINIL
     Indication: PRODUCT USED FOR UNKNOWN INDICATION
     Route: 065
  3. REVATIO [Concomitant]
     Active Substance: SILDENAFIL CITRATE
  4. LETAIRIS [Concomitant]
     Active Substance: AMBRISENTAN
  5. TADALAFIL. [Concomitant]
     Active Substance: TADALAFIL

REACTIONS (7)
  - Cellulitis [Unknown]
  - Injection site irritation [Unknown]
  - Viral infection [Unknown]
  - Cardiac disorder [Unknown]
  - Abdominal pain [Recovering/Resolving]
  - Pyrexia [Unknown]
  - Upper respiratory tract infection [Unknown]

NARRATIVE: CASE EVENT DATE: 201810
